FAERS Safety Report 14741324 (Version 3)
Quarter: 2018Q2

REPORT INFORMATION
  Report Type: Spontaneous
  Country: US (occurrence: US)
  Receive Date: 20180410
  Receipt Date: 20180508
  Transmission Date: 20180711
  Serious: Yes (Life-Threatening)
  Sender: FDA-Public Use
  Company Number: US-PFIZER INC-2018144050

PATIENT
  Age: 40 Year
  Sex: Female

DRUGS (10)
  1. MILRINONE [Concomitant]
     Active Substance: MILRINONE
     Indication: CEREBRAL VASOCONSTRICTION
     Dosage: 12.5 MG, UNK (DISTAL V4 SEGMENT OF LEFT VERTEBRAL)
     Route: 013
  2. MILRINONE [Suspect]
     Active Substance: MILRINONE
     Indication: CEREBRAL VASOCONSTRICTION
     Dosage: UNK
  3. NOREPINEPHRINE BITARTRATE. [Suspect]
     Active Substance: NOREPINEPHRINE BITARTRATE
     Indication: CEREBRAL VASOCONSTRICTION
     Dosage: UNK
     Route: 042
  4. VAZCULEP [Concomitant]
     Active Substance: PHENYLEPHRINE HYDROCHLORIDE
     Dosage: UNK (INFUSION)
     Route: 042
  5. MILRINONE [Concomitant]
     Active Substance: MILRINONE
     Indication: MUSCULAR WEAKNESS
     Dosage: UNK (ANOTHER DOSE OF IA MILRINONE INJECTED INTO THE V3 SEGMENT OF THE LEFT VERTEBRAL ARTERY (5MG), )
     Route: 013
  6. VAZCULEP [Concomitant]
     Active Substance: PHENYLEPHRINE HYDROCHLORIDE
     Indication: CEREBRAL VASOCONSTRICTION
     Dosage: UNK
     Route: 041
  7. MILRINONE [Suspect]
     Active Substance: MILRINONE
     Indication: MUSCULAR WEAKNESS
     Dosage: UNK (INFUSION TITRATED UP TO 0.75MCG/KG/MIN)
     Route: 042
  8. NOREPINEPHRINE BITARTRATE. [Suspect]
     Active Substance: NOREPINEPHRINE BITARTRATE
     Dosage: UNK
     Route: 042
  9. NORMAL SALINE [Concomitant]
     Active Substance: SODIUM CHLORIDE
     Indication: MUSCULAR WEAKNESS
     Dosage: UNK (BOLUS)
  10. MILRINONE [Concomitant]
     Active Substance: MILRINONE
     Dosage: UNK (0.75MCG/KG/MIN)

REACTIONS (6)
  - Cardiac arrest [Recovered/Resolved]
  - Cardiomyopathy [Recovered/Resolved]
  - Torsade de pointes [Recovered/Resolved]
  - Electrocardiogram QT prolonged [Recovered/Resolved]
  - Ventricular extrasystoles [Recovered/Resolved]
  - Cardiogenic shock [Recovered/Resolved]
